FAERS Safety Report 5591048-2 (Version None)
Quarter: 2008Q1

REPORT INFORMATION
  Report Type: 
  Country: None (occurrence: None)
  Receive Date: 20080115
  Receipt Date: 20080107
  Transmission Date: 20080703
  Serious: Yes (Other)
  Sender: FDA-Public Use
  Company Number: PHEH2008US00597

PATIENT
  Sex: Female

DRUGS (2)
  1. NEORAL [Suspect]
     Indication: RENAL TRANSPLANT
  2. FEMARA [Suspect]
     Indication: BREAST CANCER

REACTIONS (2)
  - BLOOD CREATININE INCREASED [None]
  - DRUG LEVEL DECREASED [None]
